FAERS Safety Report 8939764 (Version 3)
Quarter: 2013Q1

REPORT INFORMATION
  Report Type: Report from Study
  Country: DE (occurrence: DE)
  Receive Date: 20121203
  Receipt Date: 20130117
  Transmission Date: 20140127
  Serious: Yes (Hospitalization)
  Sender: FDA-Public Use
  Company Number: DE-BIOGENIDEC-2012BI056110

PATIENT
  Age: 31 Year
  Sex: Female

DRUGS (5)
  1. TYSABRI [Suspect]
     Indication: RELAPSING-REMITTING MULTIPLE SCLEROSIS
     Route: 042
     Dates: start: 20080818
  2. TOLPERISON [Concomitant]
  3. SPASMEX [Concomitant]
  4. LIORESAL [Concomitant]
  5. MIRANOVA [Concomitant]

REACTIONS (1)
  - Ankle fracture [Recovered/Resolved]
